FAERS Safety Report 8371431-2 (Version None)
Quarter: 2012Q2

REPORT INFORMATION
  Report Type: 
  Country: None (occurrence: None)
  Receive Date: 20120518
  Receipt Date: 20120510
  Transmission Date: 20120825
  Serious: Yes (Death, Hospitalization)
  Sender: FDA-Public Use
  Company Number: CH-PFIZER INC-2012118011

PATIENT
  Age: 82 Year
  Sex: Male
  Weight: 80 kg

DRUGS (20)
  1. NEBIVOLOL HCL [Concomitant]
     Dosage: 05 MG, 1X/DAY
     Route: 048
     Dates: end: 20120105
  2. MINOCIN [Suspect]
     Dosage: 50 MG, 4X/DAY
     Route: 048
     Dates: start: 20111201, end: 20111229
  3. FLUTICASONE PROPIONATE/SALMETEROL [Concomitant]
     Dosage: 1 DF, 2X/DAY
     Route: 055
     Dates: end: 20120105
  4. MINOCIN [Suspect]
     Dosage: 50 MG, 4X/DAY
     Route: 048
     Dates: start: 20111230, end: 20120105
  5. RIVAROXABAN [Suspect]
     Dosage: 10 MG, 1X/DAY
     Route: 048
     Dates: start: 20110101, end: 20120103
  6. ATACAND [Suspect]
     Dosage: UNK
     Route: 048
     Dates: start: 20111230
  7. PANTOPRAZOLE [Suspect]
     Dosage: 40 MG, 1X/DAY
     Route: 048
     Dates: end: 20120105
  8. RIMACTANE [Suspect]
     Dosage: 450 MG, 2X/DAY
     Route: 048
     Dates: start: 20111201, end: 20111227
  9. NEURONTIN [Concomitant]
     Dosage: 300 MG, 2X/DAY
     Route: 048
     Dates: end: 20111229
  10. PLANTAGO OVATA DAV [Concomitant]
     Dosage: 1 DF, UNK
     Route: 048
     Dates: end: 20111229
  11. TAMSULOSIN HYDROCHLORIDE [Concomitant]
     Dosage: 1 DF, 1X/DAY
     Route: 048
     Dates: end: 20120105
  12. HALCION [Concomitant]
     Dosage: 0.125 MG, 1X/DAY
     Route: 048
     Dates: end: 20111229
  13. MAGNESIOCARD [Concomitant]
     Dosage: 5 MMOL, 1X/DAY
     Route: 048
     Dates: end: 20120103
  14. ARTEOPTIC [Concomitant]
     Dosage: 1 GTT, 1X/DAY
     Route: 047
     Dates: end: 20120105
  15. DIPYRONE TAB [Concomitant]
     Dosage: 20 GTT, AS NEEDED
     Dates: end: 20120105
  16. RIMACTANE [Suspect]
     Dosage: 450 MG, 1X/DAY
     Route: 048
     Dates: start: 20120102, end: 20120103
  17. ASPIRIN [Suspect]
     Dosage: 100 MG, 1X/DAY
     Route: 048
     Dates: end: 20120105
  18. PLAVIX [Suspect]
     Dosage: 75 MG, 1X/DAY
     Route: 048
     Dates: end: 20110101
  19. TORSEMIDE [Suspect]
     Dosage: 5 MG, 1X/DAY
     Route: 048
     Dates: end: 20110101
  20. ATACAND HCT [Suspect]
     Dosage: 0.5 DF, 1X/DAY
     Route: 048
     Dates: end: 20111230

REACTIONS (9)
  - HYPERBILIRUBINAEMIA [None]
  - ASPARTATE AMINOTRANSFERASE INCREASED [None]
  - DIARRHOEA [None]
  - VOMITING [None]
  - JAUNDICE [None]
  - BLOOD ALKALINE PHOSPHATASE INCREASED [None]
  - ALANINE AMINOTRANSFERASE INCREASED [None]
  - LIVER INJURY [None]
  - GAMMA-GLUTAMYLTRANSFERASE INCREASED [None]
